FAERS Safety Report 13020854 (Version 7)
Quarter: 2017Q1

REPORT INFORMATION
  Report Type: Report from Study
  Country: US (occurrence: US)
  Receive Date: 20161212
  Receipt Date: 20170303
  Transmission Date: 20170428
  Serious: Yes (Hospitalization, Other)
  Sender: FDA-Public Use
  Company Number: US-009507513-1612USA000747

PATIENT
  Age: 65 Year
  Sex: Female

DRUGS (3)
  1. PEMBROLIZUMAB. [Suspect]
     Active Substance: PEMBROLIZUMAB
     Indication: NON-SMALL CELL LUNG CANCER
     Dosage: UNK, EVERY 3 WEEKS
     Route: 042
     Dates: start: 20161121, end: 20161121
  2. PREDNISONE. [Suspect]
     Active Substance: PREDNISONE
     Indication: NAUSEA
     Dosage: UNK
     Route: 048
     Dates: start: 20161205
  3. PEMBROLIZUMAB. [Suspect]
     Active Substance: PEMBROLIZUMAB
     Dosage: UNK
     Dates: start: 2017

REACTIONS (13)
  - Tumour obstruction [Unknown]
  - Adverse event [Unknown]
  - Increased appetite [Unknown]
  - Feeling abnormal [Not Recovered/Not Resolved]
  - Pneumothorax [Unknown]
  - Secretion discharge [Not Recovered/Not Resolved]
  - Memory impairment [Not Recovered/Not Resolved]
  - Pneumonitis [Recovering/Resolving]
  - Vomiting [Not Recovered/Not Resolved]
  - Malignant neoplasm progression [Unknown]
  - Palpitations [Unknown]
  - Overdose [Unknown]
  - Foreign body [Unknown]

NARRATIVE: CASE EVENT DATE: 201611
